FAERS Safety Report 18106630 (Version 3)
Quarter: 2021Q3

REPORT INFORMATION
  Report Type: Report from Study
  Country: US (occurrence: US)
  Receive Date: 20200803
  Receipt Date: 20210812
  Transmission Date: 20211014
  Serious: Yes (Hospitalization, Other)
  Sender: FDA-Public Use
  Company Number: US-EXELIXIS-XL18420031139

PATIENT
  Age: 66 Year
  Sex: Male
  Weight: 78 kg

DRUGS (13)
  1. COLACE [Concomitant]
     Active Substance: DOCUSATE SODIUM
     Dosage: 100 MG
  2. ACETAMINOPHEN. [Concomitant]
     Active Substance: ACETAMINOPHEN
     Dosage: 325 MG
  3. PEPCID [Concomitant]
     Active Substance: FAMOTIDINE
     Dosage: 20 MG
  4. XL184 [Suspect]
     Active Substance: CABOZANTINIB
     Indication: HORMONE-REFRACTORY PROSTATE CANCER
     Dosage: 40 MG, QD
     Route: 048
     Dates: start: 20200304
  5. CALCIUM CARBONATE/VITAMIN D3 [Concomitant]
     Active Substance: CALCIUM CARBONATE\CHOLECALCIFEROL
     Dosage: 1250 MG
  6. NYSTATIN. [Concomitant]
     Active Substance: NYSTATIN
  7. COMPAZINE [Concomitant]
     Active Substance: PROCHLORPERAZINE MALEATE
     Dosage: 10 MG
  8. ATEZOLIZUMAB. [Suspect]
     Active Substance: ATEZOLIZUMAB
     Indication: HORMONE-REFRACTORY PROSTATE CANCER
     Dosage: 1200 MG, Q3WEEKS
     Route: 042
     Dates: start: 20200304
  9. BETAMETHASONE DIPROPIONATE. [Concomitant]
     Active Substance: BETAMETHASONE DIPROPIONATE
     Dosage: 0.05 %
  10. LIDOCAINE. [Concomitant]
     Active Substance: LIDOCAINE
     Dosage: 4 %
  11. MELATONIN [Concomitant]
     Active Substance: MELATONIN
     Dosage: 1 MG
  12. DITROPAN [Concomitant]
     Active Substance: OXYBUTYNIN CHLORIDE
     Dosage: 5 MG
  13. PREDNISONE. [Concomitant]
     Active Substance: PREDNISONE
     Dosage: 10 MG

REACTIONS (2)
  - Deep vein thrombosis [Recovered/Resolved]
  - Pulmonary embolism [Not Recovered/Not Resolved]

NARRATIVE: CASE EVENT DATE: 20200705
